FAERS Safety Report 11745739 (Version 1)
Quarter: 2015Q4

REPORT INFORMATION
  Report Type: Spontaneous
  Country: US (occurrence: None)
  Receive Date: 20151116
  Receipt Date: 20151116
  Transmission Date: 20160304
  Serious: Yes (Other)
  Sender: FDA-Public Use
  Company Number: None

PATIENT
  Age: 41 Year
  Sex: Female
  Weight: 71.67 kg

DRUGS (2)
  1. FISH OIL [Concomitant]
     Active Substance: FISH OIL
  2. RESTASIS [Suspect]
     Active Substance: CYCLOSPORINE
     Indication: DRY EYE
     Dosage: ONE DROP TWICE DAILY

REACTIONS (3)
  - Visual acuity reduced [None]
  - Dermatitis [None]
  - Pain of skin [None]

NARRATIVE: CASE EVENT DATE: 20150518
